FAERS Safety Report 9257380 (Version 1)
Quarter: 2013Q2

REPORT INFORMATION
  Report Type: Report from Study
  Country: RU (occurrence: RU)
  Receive Date: 20130426
  Receipt Date: 20130426
  Transmission Date: 20140414
  Serious: Yes (Hospitalization)
  Sender: FDA-Public Use
  Company Number: RU-ROCHE-1217445

PATIENT
  Age: 36 Year
  Sex: Male
  Weight: 81 kg

DRUGS (2)
  1. RIBAVIRIN [Suspect]
     Indication: CHRONIC HEPATITIS C
     Dosage: 04 APR 2013 PATIENT TOOK LAST DOSE OF RIBAVIRIN PRIOR TO EVENT
     Route: 048
     Dates: start: 20130116
  2. PEG-INTERFERON ALFA 2A [Suspect]
     Indication: CHRONIC HEPATITIS C
     Dosage: ON 03 APR 2013, PATIENT TOOK LAST DOSE OF PEG-INTEFERON ALFA 2A PRIOR TO EVENT.
     Route: 058
     Dates: start: 20130116

REACTIONS (2)
  - Calculus urinary [Recovered/Resolved]
  - Renal colic [Recovered/Resolved]
